FAERS Safety Report 5445854-5 (Version None)
Quarter: 2007Q3

REPORT INFORMATION
  Report Type: 
  Country: None (occurrence: None)
  Receive Date: 20070904
  Receipt Date: 20070824
  Transmission Date: 20080115
  Serious: Yes (Hospitalization)
  Sender: FDA-Public Use
  Company Number: 028-C5013-07081478

PATIENT
  Age: 34 Year
  Sex: Male
  Weight: 74.8435 kg

DRUGS (3)
  1. CC-5013 (LENALIDOMIDE) (CAPSULES) [Suspect]
     Indication: NON-HODGKIN'S LYMPHOMA
     Dosage: 25 MG, OD X 21 DAYS, ORAL
     Route: 048
     Dates: start: 20070813, end: 20070819
  2. PAMIDRONATE DISODIUM [Concomitant]
  3. ALLOPURINOL [Concomitant]

REACTIONS (8)
  - ANAEMIA [None]
  - HYPERCALCAEMIA [None]
  - HYPOXIA [None]
  - LUNG CONSOLIDATION [None]
  - PLEURAL EFFUSION [None]
  - PULMONARY HYPERTENSION [None]
  - THROMBOCYTOPENIA [None]
  - TUMOUR LYSIS SYNDROME [None]
